FAERS Safety Report 11044054 (Version 2)
Quarter: 2015Q4

REPORT INFORMATION
  Report Type: Spontaneous
  Country: SE (occurrence: SE)
  Receive Date: 20150417
  Receipt Date: 20151008
  Transmission Date: 20160304
  Serious: Yes (Other)
  Sender: FDA-Public Use
  Company Number: SE-UCBSA-2015011647

PATIENT
  Sex: Male
  Weight: 59.8 kg

DRUGS (3)
  1. LAMOTRIGINE. [Suspect]
     Active Substance: LAMOTRIGINE
     Indication: PRODUCT USED FOR UNKNOWN INDICATION
     Dosage: 100 MG X2
     Route: 048
     Dates: start: 201203, end: 201209
  2. KEPPRA [Suspect]
     Active Substance: LEVETIRACETAM
     Indication: EPILEPSY
     Dosage: 500 MG X2
     Route: 048
     Dates: start: 20140302
  3. SUXINUTIN [Suspect]
     Active Substance: ETHOSUXIMIDE
     Indication: EPILEPSY
     Dosage: 11 ML X2
     Route: 048
     Dates: start: 20111118

REACTIONS (1)
  - Tooth discolouration [Recovered/Resolved]
